FAERS Safety Report 7375786-7 (Version None)
Quarter: 2011Q1

REPORT INFORMATION
  Report Type: 
  Country: None (occurrence: None)
  Receive Date: 20110325
  Receipt Date: 20081003
  Transmission Date: 20110831
  Serious: Yes (Hospitalization)
  Sender: FDA-Public Use
  Company Number: A0751621A

PATIENT
  Age: 61 Year
  Sex: Male
  Weight: 105 kg

DRUGS (7)
  1. ALLOPURINOL [Concomitant]
  2. PRILOSEC [Concomitant]
  3. FELDENE [Concomitant]
  4. AVANDIA [Suspect]
     Dosage: 4MG PER DAY
     Route: 048
     Dates: start: 20030501, end: 20061101
  5. DIOVAN [Concomitant]
  6. VYTORIN [Concomitant]
  7. NASACORT [Concomitant]

REACTIONS (2)
  - CARDIAC FAILURE CONGESTIVE [None]
  - CORONARY ARTERY DISEASE [None]
